FAERS Safety Report 7969405 (Version 3)
Quarter: 2012Q4

REPORT INFORMATION
  Report Type: 
  Country: US (occurrence: US)
  Receive Date: 20110601
  Receipt Date: 20120903
  Transmission Date: 20130627
  Serious: Yes (Other)
  Sender: FDA-Public Use
  Company Number: US-AMGEN-USASP2011026929

PATIENT
  Age: 0 Year

DRUGS (1)
  1. ENBREL [Suspect]
     Dosage: 50 mg, 2 times/wk
     Route: 064
     Dates: start: 20030101

REACTIONS (1)
  - Jaundice neonatal [Unknown]
